FAERS Safety Report 6229139-5 (Version None)
Quarter: 2009Q2

REPORT INFORMATION
  Report Type: 
  Country: None (occurrence: None)
  Receive Date: 20090601
  Receipt Date: 20090128
  Transmission Date: 20091009
  Serious: Yes (Other)
  Sender: FDA-Public Use
  Company Number: US200901005181

PATIENT
  Age: 55 Year
  Sex: Male

DRUGS (3)
  1. BYETTA [Suspect]
     Indication: TYPE 2 DIABETES MELLITUS
     Dosage: 10 UG, 2/D, SUBCUTANEOUS
     Route: 058
     Dates: start: 20070101, end: 20090101
  2. EXENATIDE 10MCG PEN, DISPOSABLE DEVICE (EXENATIDEPEN (10MCG)) PEN, DIS [Concomitant]
  3. DIOVAN (HYDROCHLOROTHIAZIDE, VALSARTAN) [Concomitant]

REACTIONS (1)
  - ANGIOEDEMA [None]
